FAERS Safety Report 9033148 (Version 1)
Quarter: 2013Q1

REPORT INFORMATION
  Report Type: Spontaneous
  Country: JP (occurrence: JP)
  Receive Date: 20130128
  Receipt Date: 20130128
  Transmission Date: 20140127
  Serious: Yes (Hospitalization)
  Sender: FDA-Public Use
  Company Number: JP-SANOFI-AVENTIS-2010SA017400

PATIENT
  Age: 54 Year
  Sex: Female
  Weight: 52 kg

DRUGS (4)
  1. ZOLEDRONIC ACID [Suspect]
     Indication: METASTASES TO BONE
     Route: 048
     Dates: start: 2005, end: 2009
  2. TAXOTERE [Suspect]
     Indication: METASTASES TO LIVER
     Route: 065
     Dates: start: 2004
  3. TRASTUZUMAB [Suspect]
     Indication: METASTASES TO LIVER
     Route: 048
     Dates: start: 2005
  4. THERAPEUTIC RADIOPHARMACEUTICALS [Concomitant]
     Indication: METASTASES TO BONE
     Dates: start: 2005

REACTIONS (18)
  - Tubulointerstitial nephritis [Recovering/Resolving]
  - Hypokalaemia [Recovering/Resolving]
  - Dry mouth [Recovering/Resolving]
  - Polydipsia [Recovering/Resolving]
  - Polyuria [Recovering/Resolving]
  - Blood creatinine increased [Recovering/Resolving]
  - Glomerular filtration rate decreased [Recovering/Resolving]
  - Renal tubular acidosis [Recovering/Resolving]
  - Fanconi syndrome [Recovering/Resolving]
  - Glycosuria [Recovered/Resolved]
  - Hypophosphataemia [Recovering/Resolving]
  - Hyperphosphaturia [Recovering/Resolving]
  - Hyponatraemia [Recovering/Resolving]
  - Hypouricaemia [Recovering/Resolving]
  - Globulinuria [Recovered/Resolved]
  - Albuminuria [Recovered/Resolved]
  - Aminoaciduria [Recovering/Resolving]
  - Nausea [Unknown]
